FAERS Safety Report 20706363 (Version 1)
Quarter: 2022Q2

REPORT INFORMATION
  Report Type: Spontaneous
  Country: US (occurrence: None)
  Receive Date: 20220413
  Receipt Date: 20220413
  Transmission Date: 20220721
  Serious: Yes (Life-Threatening)
  Sender: FDA-Public Use
  Company Number: None

PATIENT
  Age: 65 Year
  Sex: Female
  Weight: 60.75 kg

DRUGS (2)
  1. MULTIHANCE [Suspect]
     Active Substance: GADOBENATE DIMEGLUMINE
     Indication: Encephalopathy
     Dosage: FREQUENCY : AS NEEDED;?
     Route: 040
     Dates: start: 20220412, end: 20220412
  2. MULTIHANCE [Concomitant]
     Active Substance: GADOBENATE DIMEGLUMINE
     Dates: start: 20220412, end: 20220412

REACTIONS (4)
  - Hypersensitivity [None]
  - Urticaria [None]
  - Throat irritation [None]
  - Vomiting [None]

NARRATIVE: CASE EVENT DATE: 20220412
